FAERS Safety Report 4600230-X (Version None)
Quarter: 2005Q1

REPORT INFORMATION
  Report Type: 
  Country: None (occurrence: None)
  Receive Date: 20050303
  Receipt Date: 20050217
  Transmission Date: 20050727
  Serious: Yes (Life-Threatening, Hospitalization)
  Sender: FDA-Public Use
  Company Number: ISM-022005-0001

PATIENT
  Age: 22 Year
  Sex: Male

DRUGS (1)
  1. ISOSORBIDE MONONITRATE [Suspect]

REACTIONS (12)
  - ACUTE RESPIRATORY DISTRESS SYNDROME [None]
  - BAROTRAUMA [None]
  - EMPHYSEMA [None]
  - ILEUS PARALYTIC [None]
  - INTENTIONAL MISUSE [None]
  - MEDICAL DEVICE COMPLICATION [None]
  - PNEUMOMEDIASTINUM [None]
  - PNEUMOPERITONEUM [None]
  - PNEUMOTHORAX [None]
  - SHOCK [None]
  - SOFT TISSUE INJURY [None]
  - SUICIDE ATTEMPT [None]
